FAERS Safety Report 4358261-3 (Version None)
Quarter: 2004Q2

REPORT INFORMATION
  Report Type: 
  Country: None (occurrence: None)
  Receive Date: 20040511
  Receipt Date: 20040428
  Transmission Date: 20050107
  Serious: Yes (Hospitalization)
  Sender: FDA-Public Use
  Company Number: 04P-150-0259074-00

PATIENT
  Age: 42 Year
  Sex: Female

DRUGS (12)
  1. HUMIRA [Suspect]
     Indication: RHEUMATOID ARTHRITIS
     Dosage: 40 MG, 1 IN 14 D, SUBCUTANEOUS
     Route: 058
     Dates: start: 20030415, end: 20040202
  2. ORUDIS RETARD [Concomitant]
  3. FELODIPINE [Concomitant]
  4. ESOMEPRAZOLE [Concomitant]
  5. SIBUTRAMINE HYDROCHLORIDE [Concomitant]
  6. ACETAMINOPHEN [Concomitant]
  7. CYANOCOBALAMIN [Concomitant]
  8. SALURES-K [Concomitant]
  9. INDOMETHACIN [Concomitant]
  10. ATENOLOL [Concomitant]
  11. PREDNISOLONE [Concomitant]
  12. MYCOPHENOLATE MOFETIL [Concomitant]

REACTIONS (3)
  - ABSCESS LIMB [None]
  - OSTEITIS [None]
  - VASCULITIS [None]
